FAERS Safety Report 10092234 (Version 2)
Quarter: 2014Q2

REPORT INFORMATION
  Report Type: Spontaneous
  Country: US (occurrence: US)
  Receive Date: 20140421
  Receipt Date: 20140421
  Transmission Date: 20141212
  Serious: No
  Sender: FDA-Public Use
  Company Number: US-SANOFI-AVENTIS-2013SA024459

PATIENT
  Age: 66 Year
  Sex: Female
  Weight: 74 kg

DRUGS (11)
  1. ALLEGRA [Suspect]
     Indication: HYPERSENSITIVITY
     Route: 048
  2. ACYCLOVIR [Concomitant]
     Indication: ULCERATIVE KERATITIS
  3. BISOPROLOL [Concomitant]
     Indication: BLOOD PRESSURE
  4. LEVOTHYROXINE [Concomitant]
     Indication: THYROID DISORDER
  5. CITALOPRAM [Concomitant]
  6. ACETYLSALICYLIC ACID [Concomitant]
     Dosage: 2 BABY ASPIRIN EVERY DAY
  7. VITAMINS NOS [Concomitant]
  8. ALL OTHER THERAPEUTIC PRODUCTS [Concomitant]
  9. AMBIEN [Concomitant]
     Indication: INSOMNIA
     Route: 048
  10. LEVOTHYROXINE [Concomitant]
     Indication: THYROID DISORDER
  11. BISOPROLOL/HYDROCHLOROTHIAZIDE [Concomitant]
     Indication: BLOOD PRESSURE

REACTIONS (3)
  - Oral pruritus [Unknown]
  - Drug ineffective [Unknown]
  - Extra dose administered [Unknown]
